FAERS Safety Report 25503554 (Version 1)
Quarter: 2025Q3

REPORT INFORMATION
  Report Type: Spontaneous
  Country: EU (occurrence: EU)
  Receive Date: 20250702
  Receipt Date: 20250702
  Transmission Date: 20251020
  Serious: Yes (Hospitalization)
  Sender: MYLAN
  Company Number: EU-MYLANLABS-2025M1054988

PATIENT
  Sex: Female

DRUGS (2)
  1. DOXORUBICIN [Suspect]
     Active Substance: DOXORUBICIN
     Indication: Alveolar rhabdomyosarcoma
     Dosage: 50 MILLIGRAM/SQ. METER, Q3W (ON DAY?1)
  2. IFOSFAMIDE [Suspect]
     Active Substance: IFOSFAMIDE
     Indication: Alveolar rhabdomyosarcoma
     Dosage: 2.5 GRAM PER SQUARE METRE, Q3W (2.5 GRAM PER SQUARE METRE)

REACTIONS (6)
  - Foetal growth restriction [Recovering/Resolving]
  - Premature baby [Unknown]
  - Jaundice [Unknown]
  - Anaemia [Unknown]
  - Bradycardia [Recovered/Resolved]
  - Foetal exposure during pregnancy [Recovered/Resolved]
